FAERS Safety Report 6891374-0 (Version None)
Quarter: 2010Q3

REPORT INFORMATION
  Report Type: 
  Country: None (occurrence: None)
  Receive Date: 20100731
  Receipt Date: 20060616
  Transmission Date: 20110219
  Serious: No
  Sender: FDA-Public Use
  Company Number: US-PFIZER INC-2006047135

PATIENT
  Sex: Female
  Weight: 63.5 kg

DRUGS (2)
  1. DEPO-MEDROL [Suspect]
     Indication: BACK PAIN
     Route: 030
     Dates: start: 20060324
  2. NEXIUM [Concomitant]
     Route: 048

REACTIONS (1)
  - INCREASED APPETITE [None]
